FAERS Safety Report 17660173 (Version 1)
Quarter: 2020Q2

REPORT INFORMATION
  Report Type: Spontaneous
  Country: US (occurrence: US)
  Receive Date: 20200410
  Receipt Date: 20200410
  Transmission Date: 20200713
  Serious: Yes (Hospitalization)
  Sender: FDA-Public Use
  Company Number: None

PATIENT
  Age: 54 Year
  Sex: Female
  Weight: 51.3 kg

DRUGS (1)
  1. ASPIRIN. [Suspect]
     Active Substance: ASPIRIN
     Dates: end: 20191231

REACTIONS (4)
  - Dyspnoea [None]
  - Chronic obstructive pulmonary disease [None]
  - Pyrexia [None]
  - Respiratory distress [None]

NARRATIVE: CASE EVENT DATE: 20200101
